FAERS Safety Report 7553851-9 (Version None)
Quarter: 2011Q2

REPORT INFORMATION
  Report Type: 
  Country: None (occurrence: None)
  Receive Date: 20110617
  Receipt Date: 20110610
  Transmission Date: 20111010
  Serious: Yes (Hospitalization)
  Sender: FDA-Public Use
  Company Number: TR-BRISTOL-MYERS SQUIBB COMPANY-15792484

PATIENT
  Age: 14 Year
  Sex: Male

DRUGS (11)
  1. NETILMICIN SULFATE [Suspect]
     Indication: PNEUMONIA
  2. DEXAMETHASONE [Suspect]
     Indication: T-CELL TYPE ACUTE LEUKAEMIA
  3. METHOTREXATE [Suspect]
  4. LINEZOLID [Suspect]
     Indication: PNEUMONIA
  5. VINCRISTINE [Suspect]
  6. ASPARAGINASE [Suspect]
  7. ALLOPURINOL [Suspect]
  8. CASPOFUNGIN ACETATE [Suspect]
     Indication: PNEUMONIA
  9. COTRIM [Suspect]
     Indication: PNEUMONIA
  10. CYTARABINE [Suspect]
  11. CYCLOPHOSPHAMIDE [Suspect]
     Indication: T-CELL TYPE ACUTE LEUKAEMIA

REACTIONS (1)
  - MANIA [None]
